FAERS Safety Report 12182640 (Version 1)
Quarter: 2016Q1

REPORT INFORMATION
  Report Type: Spontaneous
  Country: US (occurrence: None)
  Receive Date: 20160315
  Receipt Date: 20160315
  Transmission Date: 20160526
  Serious: No
  Sender: FDA-Public Use
  Company Number: None

PATIENT
  Age: 39 Year
  Sex: Female

DRUGS (2)
  1. MIRENA [Concomitant]
     Active Substance: LEVONORGESTREL
  2. REVLON AGE DEFYING CREAM SPF 30 [Suspect]
     Active Substance: OCTINOXATE\OCTISALATE\TITANIUM DIOXIDE
     Indication: SKIN COSMETIC PROCEDURE
     Dates: start: 20160310, end: 20160314

REACTIONS (1)
  - Urticaria [None]

NARRATIVE: CASE EVENT DATE: 20160314
